FAERS Safety Report 7244641-5 (Version None)
Quarter: 2011Q1

REPORT INFORMATION
  Report Type: 
  Country: None (occurrence: None)
  Receive Date: 20110125
  Receipt Date: 20101115
  Transmission Date: 20110831
  Serious: No
  Sender: FDA-Public Use
  Company Number: US-MYLANLABS-2010S1017545

PATIENT
  Age: 68 Year
  Sex: Male
  Weight: 95.26 kg

DRUGS (6)
  1. FENOFIBRATE [Suspect]
     Indication: BLOOD CHOLESTEROL INCREASED
     Route: 048
     Dates: start: 20100909, end: 20100916
  2. FISH OIL [Concomitant]
  3. GINKGO [Concomitant]
  4. LIPOFEN [Suspect]
     Indication: BLOOD CHOLESTEROL INCREASED
     Route: 048
     Dates: start: 20100819, end: 20100908
  5. COQ10 [Concomitant]
  6. ONE A DAY ADVANCE ADULTS 50+ [Concomitant]

REACTIONS (7)
  - MYALGIA [None]
  - GAIT DISTURBANCE [None]
  - DYSPNOEA [None]
  - ARTHRALGIA [None]
  - DROOLING [None]
  - PAIN IN JAW [None]
  - FATIGUE [None]
